FAERS Safety Report 9976503 (Version 1)
Quarter: 2014Q1

REPORT INFORMATION
  Report Type: Report from Study
  Country: US (occurrence: US)
  Receive Date: 20140306
  Receipt Date: 20140306
  Transmission Date: 20141002
  Serious: No
  Sender: FDA-Public Use
  Company Number: US-ABBVIE-13P-163-1163588-00

PATIENT
  Sex: Female

DRUGS (10)
  1. HUMIRA [Suspect]
     Indication: RHEUMATOID ARTHRITIS
  2. HUMIRA [Suspect]
     Dates: end: 20131007
  3. SYNTHROID [Concomitant]
     Indication: HYPOTHYROIDISM
     Dosage: 150 MILLIGRAMS DAILY; FOUR DAYS PER WEEK
  4. SYNTHROID [Concomitant]
     Dosage: 175 MILLIGRAMS DAILY; THREE DAYS PER WEEK
  5. LORAZEPAM [Concomitant]
     Indication: INSOMNIA
     Dosage: AT BEDTIME
  6. GABAPENTIN [Concomitant]
     Indication: FIBROMYALGIA
     Dosage: 9 TABLETS PER DAY
  7. PLAQUENIL [Concomitant]
     Indication: FIBROMYALGIA
     Dosage: 200 MILLIGRAMS DAILY
  8. MIRAPEX [Concomitant]
     Indication: RESTLESS LEGS SYNDROME
     Dosage: AT BEDTIME
  9. PREDNISONE [Concomitant]
     Indication: PRODUCT USED FOR UNKNOWN INDICATION
     Dosage: 5 MILLIGRAMS DAILY
  10. SIMPONI [Concomitant]
     Indication: PRODUCT USED FOR UNKNOWN INDICATION
     Dates: start: 20131012

REACTIONS (1)
  - Rheumatoid arthritis [Not Recovered/Not Resolved]
